FAERS Safety Report 25715826 (Version 1)
Quarter: 2025Q3

REPORT INFORMATION
  Report Type: Spontaneous
  Country: US (occurrence: None)
  Receive Date: 20250821
  Receipt Date: 20250821
  Transmission Date: 20251020
  Serious: No
  Sender: FDA-CTU
  Company Number: None

PATIENT

DRUGS (1)
  1. POMALYST [Suspect]
     Active Substance: POMALIDOMIDE

REACTIONS (8)
  - Therapy interrupted [None]
  - Urticaria [None]
  - Rash erythematous [None]
  - Pain [None]
  - Confusional state [None]
  - Disorientation [None]
  - Plasma cell myeloma [None]
  - Dehydration [None]
